FAERS Safety Report 9681967 (Version 2)
Quarter: 2013Q4

REPORT INFORMATION
  Report Type: Spontaneous
  Country: US (occurrence: US)
  Receive Date: 20131111
  Receipt Date: 20131205
  Transmission Date: 20140711
  Serious: Yes (Other)
  Sender: FDA-Public Use
  Company Number: US-FRI-1000050928

PATIENT
  Age: 63 Year
  Sex: Male

DRUGS (8)
  1. VIIBRYD [Suspect]
     Indication: DEPRESSION
     Dosage: 10 MG
     Route: 048
     Dates: start: 20131022, end: 20131104
  2. PAXIL [Suspect]
     Indication: DEPRESSION
     Dates: end: 20131021
  3. PAXIL [Suspect]
     Dosage: 5 MG
     Dates: start: 20131022, end: 20131029
  4. LOSARTAN [Concomitant]
     Indication: HYPERTENSION
     Dosage: 100 MG
  5. OMEPRAZOLE [Concomitant]
     Indication: GASTROOESOPHAGEAL REFLUX DISEASE
  6. HYDROCHLOROTHIAZIDE [Concomitant]
  7. BABY ASPIRIN [Concomitant]
     Dosage: 81 MG
  8. MVI [Concomitant]

REACTIONS (4)
  - Rectal haemorrhage [Recovered/Resolved]
  - Dizziness [Recovering/Resolving]
  - Paraesthesia [Recovering/Resolving]
  - Feeling abnormal [Recovering/Resolving]
